FAERS Safety Report 4673177-0 (Version None)
Quarter: 2005Q2

REPORT INFORMATION
  Report Type: 
  Country: None (occurrence: None)
  Receive Date: 20050525
  Receipt Date: 20040520
  Transmission Date: 20051028
  Serious: Yes (Other)
  Sender: FDA-Public Use
  Company Number: US-2004-BP-03946BP

PATIENT
  Sex: Female

DRUGS (7)
  1. VIRAMUNE [Suspect]
     Indication: HIV INFECTION
     Dates: start: 20031113, end: 20040311
  2. VIRAMUNE [Suspect]
     Dates: start: 20040326
  3. ZIDOVUDINE [Suspect]
     Indication: HIV INFECTION
     Dates: start: 20031113, end: 20040113
  4. STAVUDINE [Suspect]
     Indication: HIV INFECTION
     Dates: start: 20040204, end: 20040311
  5. STAVUDINE [Suspect]
     Dates: start: 20040326
  6. DIDANOSINE [Suspect]
     Indication: HIV INFECTION
     Dates: start: 20031113, end: 20040311
  7. DIDANOSINE [Suspect]
     Dates: start: 20040326

REACTIONS (4)
  - BLOOD AMYLASE INCREASED [None]
  - LIPASE INCREASED [None]
  - NEUTROPENIA [None]
  - VOMITING [None]
